FAERS Safety Report 17864379 (Version 1)
Quarter: 2020Q2

REPORT INFORMATION
  Report Type: Spontaneous
  Country: US (occurrence: US)
  Receive Date: 20200604
  Receipt Date: 20200604
  Transmission Date: 20200714
  Serious: No
  Sender: FDA-Public Use
  Company Number: None

PATIENT
  Age: 63 Year
  Sex: Female
  Weight: 89.6 kg

DRUGS (2)
  1. HYDROCHLOROTHIAZIDE. [Concomitant]
     Active Substance: HYDROCHLOROTHIAZIDE
  2. ARIMIDEX [Suspect]
     Active Substance: ANASTROZOLE
     Dates: end: 20190401

REACTIONS (1)
  - Implantation complication [None]

NARRATIVE: CASE EVENT DATE: 20200423
